FAERS Safety Report 8230474-X (Version None)
Quarter: 2012Q1

REPORT INFORMATION
  Report Type: 
  Country: None (occurrence: None)
  Receive Date: 20120323
  Receipt Date: 20120319
  Transmission Date: 20120608
  Serious: No
  Sender: FDA-Public Use
  Company Number: US-BAYER-2012-027434

PATIENT
  Age: 56 Year
  Sex: Male

DRUGS (7)
  1. BENADRYL [Concomitant]
  2. TRAMADOL HCL [Concomitant]
  3. VICODIN [Concomitant]
  4. OMEPRAZOLE [Concomitant]
  5. LEVITRA [Suspect]
     Indication: ERECTILE DYSFUNCTION
     Dosage: 10 MG, UNK
     Route: 048
     Dates: start: 20100101
  6. TEGRETOL [Concomitant]
  7. COMBIVENT [Concomitant]

REACTIONS (1)
  - HEADACHE [None]
